FAERS Safety Report 5898657-1 (Version None)
Quarter: 2008Q3

REPORT INFORMATION
  Report Type: 
  Country: None (occurrence: None)
  Receive Date: 20080925
  Receipt Date: 20080319
  Transmission Date: 20090109
  Serious: No
  Sender: FDA-Public Use
  Company Number: A0716434A

PATIENT
  Age: 42 Year
  Sex: Female

DRUGS (15)
  1. WELLBUTRIN XL [Suspect]
     Indication: DEPRESSION
     Dosage: 300MG PER DAY
     Route: 048
     Dates: start: 20000201, end: 20080227
  2. LASIX [Concomitant]
  3. MORPHINE [Concomitant]
  4. PHENERGAN HCL [Concomitant]
  5. GLUCOPHAGE [Concomitant]
  6. RESTORIL [Concomitant]
  7. AMBIEN CR [Concomitant]
  8. PROZAC [Concomitant]
  9. XANAX [Concomitant]
  10. BENADRYL [Concomitant]
  11. ZYRTEC [Concomitant]
  12. GABITRIL [Concomitant]
  13. ADALAT [Concomitant]
  14. BACLOFEN [Concomitant]
  15. VITAMIN B-12 [Concomitant]

REACTIONS (7)
  - AMNESIA [None]
  - ANOREXIA [None]
  - BLOOD GLUCOSE DECREASED [None]
  - FALL [None]
  - PAIN [None]
  - RIB FRACTURE [None]
  - WEIGHT DECREASED [None]
